FAERS Safety Report 14950217 (Version 1)
Quarter: 2018Q2

REPORT INFORMATION
  Report Type: Report from Study
  Country: TW (occurrence: TW)
  Receive Date: 20180530
  Receipt Date: 20180530
  Transmission Date: 20180711
  Serious: Yes (Other)
  Sender: FDA-Public Use
  Company Number: TW-ACCORD-050854

PATIENT
  Age: 56 Year
  Sex: Male

DRUGS (4)
  1. FLUOROURACIL. [Suspect]
     Active Substance: FLUOROURACIL
     Indication: RECTOSIGMOID CANCER METASTATIC
     Dosage: ALSO RECEIVED IV INFUSION OF 2400 MG/M^2 OVER A 46-HOUR PERIOD
     Route: 040
  2. BEVACIZUMAB. [Suspect]
     Active Substance: BEVACIZUMAB
     Indication: RECTOSIGMOID CANCER METASTATIC
     Dosage: REPEATED EVERY 2 WEEKS,??6 CYCLES OF BEVACIZUMAB
     Route: 041
  3. FOLINIC ACID [Suspect]
     Active Substance: LEUCOVORIN
     Indication: RECTOSIGMOID CANCER METASTATIC
  4. IRINOTECAN [Suspect]
     Active Substance: IRINOTECAN
     Indication: RECTOSIGMOID CANCER METASTATIC
     Dosage: OVER 2 H ON DAY 1,??THE DOSE WAS ESCALATED FROM 120 TO 150 (1CY) THEN TO 180 (2CY) AND 210 (2CY)

REACTIONS (3)
  - Stomatitis [Unknown]
  - Leukopenia [Unknown]
  - Fatigue [Unknown]
